FAERS Safety Report 6422705-3 (Version None)
Quarter: 2009Q4

REPORT INFORMATION
  Report Type: 
  Country: None (occurrence: None)
  Receive Date: 20091102
  Receipt Date: 20091023
  Transmission Date: 20100525
  Serious: Yes (Other)
  Sender: FDA-Public Use
  Company Number: US-JNJFOC-20091007799

PATIENT
  Sex: Female

DRUGS (1)
  1. INVEGA [Suspect]
     Indication: SCHIZOPHRENIA
     Route: 048

REACTIONS (4)
  - BLOOD PROLACTIN INCREASED [None]
  - BREAST DISCHARGE [None]
  - BREAST ENLARGEMENT [None]
  - WEIGHT INCREASED [None]
